FAERS Safety Report 7736125 (Version 3)
Quarter: 2014Q1

REPORT INFORMATION
  Report Type: Spontaneous
  Country: US (occurrence: US)
  Receive Date: 20101223
  Receipt Date: 20140110
  Transmission Date: 20141002
  Serious: Yes (Hospitalization, Other)
  Sender: FDA-Public Use
  Company Number: US-BAYER-201022567NA

PATIENT
  Age: 25 Year
  Sex: Female
  Weight: 52 kg

DRUGS (5)
  1. YASMIN [Suspect]
     Indication: PRODUCT USED FOR UNKNOWN INDICATION
     Dosage: UNK
     Dates: start: 2002, end: 2006
  2. YASMIN [Suspect]
     Indication: PRODUCT USED FOR UNKNOWN INDICATION
  3. YAZ [Suspect]
     Dosage: UNK
     Dates: start: 2001, end: 2006
  4. ADVIL [Concomitant]
     Dosage: UNK UNK, PRN
  5. NEXIUM [Concomitant]

REACTIONS (3)
  - Gallbladder disorder [None]
  - Cholecystitis chronic [None]
  - Injury [None]
